FAERS Safety Report 13585885 (Version 19)
Quarter: 2018Q3

REPORT INFORMATION
  Report Type: Report from Study
  Country: JP (occurrence: JP)
  Receive Date: 20170526
  Receipt Date: 20180912
  Transmission Date: 20181010
  Serious: Yes (Hospitalization)
  Sender: FDA-Public Use
  Company Number: JP-PFIZER INC-2017230487

PATIENT
  Age: 50 Year
  Sex: Male
  Weight: 61.7 kg

DRUGS (30)
  1. AXITINIB [Suspect]
     Active Substance: AXITINIB
     Dosage: 5 MG, 2X/DAY (FLUCTUATED DOSES) CYCLIC
     Route: 048
     Dates: start: 20180531
  2. EURAX [Concomitant]
     Active Substance: CROTAMITON
     Dosage: 1 DF, UNK
     Route: 061
     Dates: start: 20170309
  3. PEMBROLIZUMAB. [Suspect]
     Active Substance: PEMBROLIZUMAB
     Dosage: 200 MG, EVERY 3 WEEKS
     Route: 042
     Dates: start: 20170531
  4. RINDERON V [Concomitant]
     Active Substance: BETAMETHASONE VALERATE
     Dosage: 1 DF, UNK
     Route: 061
     Dates: start: 20161230
  5. LENDORMIN D [Concomitant]
     Active Substance: BROTIZOLAM
     Dosage: 0.5 DF, UNK
     Route: 048
     Dates: start: 200701
  6. AZUNOL [Concomitant]
     Active Substance: SODIUM GUALENATE
     Dosage: 1 DF, UNK
     Dates: start: 20170227
  7. ALLERMIST [Concomitant]
     Active Substance: FLUTICASONE FUROATE
     Dosage: 4 DF, UNK
     Dates: start: 20170309
  8. KENALOG ORABASE [Concomitant]
     Dosage: 1 DF, UNK
     Route: 061
     Dates: start: 20170327, end: 20171013
  9. RABEPRAZOLE SODIUM. [Concomitant]
     Active Substance: RABEPRAZOLE SODIUM
     Indication: PROPHYLAXIS AGAINST GASTROINTESTINAL ULCER
     Dosage: 20 MG, UNK
     Route: 048
     Dates: start: 20170330, end: 20170518
  10. PREDONINE [Concomitant]
     Active Substance: PREDNISOLONE
     Indication: DIARRHOEA
     Dosage: 5 MG, UNK
     Route: 048
     Dates: start: 20170422, end: 20170518
  11. PEMBROLIZUMAB. [Suspect]
     Active Substance: PEMBROLIZUMAB
     Dosage: 200 MG, EVERY 3 WEEKS
     Route: 042
     Dates: start: 20170502, end: 20170502
  12. URALYT [Concomitant]
     Active Substance: POTASSIUM CITRATE\TRISODIUM CITRATE DIHYDRATE
     Dosage: 1 DF, UNK
     Route: 048
     Dates: start: 200701
  13. SUVENYL [Concomitant]
     Active Substance: HYALURONATE SODIUM
     Dosage: 1 DF, UNK
     Dates: start: 20170123
  14. AZUNOL [Concomitant]
     Active Substance: SODIUM GUALENATE
     Dosage: 2 MG, UNK
     Route: 048
     Dates: start: 20170508, end: 20170518
  15. XYLOCAINE [Concomitant]
     Active Substance: LIDOCAINE HYDROCHLORIDE
     Dosage: 1 DF, UNK
     Route: 048
     Dates: start: 20170508, end: 20170518
  16. AXITINIB [Suspect]
     Active Substance: AXITINIB
     Dosage: 5 MG, 2X/DAY, CYCLIC
     Route: 048
     Dates: start: 20170502, end: 20170523
  17. BESOFTEN [Concomitant]
     Active Substance: PENTOSAN POLYSULFATE SODIUM
     Dosage: 1 DF, UNK
     Route: 061
     Dates: start: 20170227
  18. REBAMIPIDE [Concomitant]
     Active Substance: REBAMIPIDE
     Dosage: 100 MG, UNK
     Route: 048
     Dates: start: 20170319
  19. PREDONINE [Concomitant]
     Active Substance: PREDNISOLONE
     Indication: STEROID THERAPY
  20. AXITINIB [Suspect]
     Active Substance: AXITINIB
     Indication: METASTATIC RENAL CELL CARCINOMA
     Dosage: 5 MG, 2X/DAY (STARTING DOSE AT 5 MG, BID, FLUCTUATED DOSE), CYCLIC
     Route: 048
     Dates: start: 20170215, end: 20170501
  21. FEBURIC [Concomitant]
     Active Substance: FEBUXOSTAT
     Dosage: 20 MG, UNK
     Route: 048
     Dates: start: 201101
  22. LOXOPROFEN SODIUM [Concomitant]
     Active Substance: LOXOPROFEN SODIUM
     Indication: PYREXIA
     Dosage: 60 MG, UNK
     Route: 048
     Dates: start: 20170319
  23. BAKTAR [Concomitant]
     Active Substance: SULFAMETHOXAZOLE\TRIMETHOPRIM
     Indication: INFECTION PROPHYLAXIS
     Dosage: 1 DF, UNK
     Route: 048
     Dates: start: 20170330, end: 20171004
  24. THYRADIN [Concomitant]
     Active Substance: LEVOTHYROXINE
     Indication: HYPOTHYROIDISM
     Dosage: 25 UG, UNK
     Route: 048
     Dates: start: 20170501, end: 20170525
  25. AXITINIB [Suspect]
     Active Substance: AXITINIB
     Dosage: 5 MG, 2X/DAY, CYCLIC
     Route: 048
     Dates: start: 20170524, end: 20170524
  26. PEMBROLIZUMAB. [Suspect]
     Active Substance: PEMBROLIZUMAB
     Indication: METASTATIC RENAL CELL CARCINOMA
     Dosage: 200 MG, EVERY 3 WEEKS (VOLUME OF INJECTION: 108ML)
     Route: 042
     Dates: start: 20170215, end: 20170308
  27. BETNOVAL G [Concomitant]
     Dosage: 1 DF, UNK
     Route: 061
     Dates: start: 20170227
  28. HEPARINOID OIL BASED CREAM NICHIIKO [Concomitant]
     Dosage: 1 DF, UNK
     Route: 061
     Dates: start: 20170311
  29. HUMULIN R [Concomitant]
     Active Substance: INSULIN HUMAN
     Indication: BLOOD GLUCOSE ABNORMAL
     Dosage: 1 DF, UNK
     Dates: start: 20170331, end: 20170524
  30. URSODIOL. [Concomitant]
     Active Substance: URSODIOL
     Dosage: 100 MG, UNK
     Dates: start: 20170410, end: 20170502

REACTIONS (1)
  - Sinus tachycardia [Recovered/Resolved]

NARRATIVE: CASE EVENT DATE: 20170512
